FAERS Safety Report 9879930 (Version 3)
Quarter: 2014Q2

REPORT INFORMATION
  Report Type: Spontaneous
  Country: MX (occurrence: MX)
  Receive Date: 20140207
  Receipt Date: 20140613
  Transmission Date: 20141212
  Serious: Yes (Other)
  Sender: FDA-Public Use
  Company Number: MX-AMGEN-MEXSP2014008570

PATIENT
  Age: 62 Year
  Sex: Female

DRUGS (2)
  1. PROLIA [Suspect]
     Indication: OSTEOPOROSIS
     Dosage: 60 MG, SINGLE DOSE
     Route: 042
     Dates: start: 201307, end: 201307
  2. OMEGA 3                            /01333901/ [Concomitant]
     Indication: HYPERLIPIDAEMIA
     Dosage: 1000MGD PER DAY
     Route: 048

REACTIONS (9)
  - Paraesthesia oral [Recovered/Resolved]
  - Paraesthesia [Recovered/Resolved]
  - Palmar erythema [Recovered/Resolved]
  - Hypoaesthesia [Recovered/Resolved]
  - Laryngospasm [Recovered/Resolved]
  - Refusal of treatment by patient [Unknown]
  - Pruritus [Recovered/Resolved]
  - Bone pain [Recovered/Resolved]
  - Erythema [Recovered/Resolved]
